FAERS Safety Report 17644656 (Version 2)
Quarter: 2020Q2

REPORT INFORMATION
  Report Type: Spontaneous
  Country: IT (occurrence: IT)
  Receive Date: 20200408
  Receipt Date: 20200415
  Transmission Date: 20200713
  Serious: Yes (Other)
  Sender: FDA-Public Use
  Company Number: IT-TEVA-2020-IT-1220558

PATIENT
  Age: 54 Year
  Weight: 84 kg

DRUGS (1)
  1. CIQORIN [Suspect]
     Active Substance: CYCLOSPORINE
     Route: 048
     Dates: start: 20191205, end: 20191222

REACTIONS (1)
  - Hypertensive crisis [Recovered/Resolved]

NARRATIVE: CASE EVENT DATE: 20191222
